FAERS Safety Report 10181972 (Version 1)
Quarter: 2014Q2

REPORT INFORMATION
  Report Type: Spontaneous
  Country: US (occurrence: US)
  Receive Date: 20140519
  Receipt Date: 20140519
  Transmission Date: 20141212
  Serious: Yes (Hospitalization)
  Sender: FDA-Public Use
  Company Number: US-RB-067466-14

PATIENT
  Age: 0 Day
  Sex: Male

DRUGS (1)
  1. SUBUTEX [Suspect]
     Indication: PRODUCT USED FOR UNKNOWN INDICATION
     Dosage: MATERNAL FURTHER DOSING DETAILS UNKNOWN
     Route: 064

REACTIONS (2)
  - Foetal exposure during pregnancy [Recovered/Resolved]
  - Hospitalisation [Unknown]
